FAERS Safety Report 5946651-4 (Version None)
Quarter: 2008Q4

REPORT INFORMATION
  Report Type: 
  Country: None (occurrence: None)
  Receive Date: 20081110
  Receipt Date: 20081029
  Transmission Date: 20090506
  Serious: Yes (Death)
  Sender: FDA-Public Use
  Company Number: FR-ROCHE-593603

PATIENT

DRUGS (1)
  1. OSELTAMIVIR [Suspect]
     Indication: INFLUENZA
     Dosage: 5 DAY COURSE NOT COMPLETED
     Route: 065

REACTIONS (1)
  - DEATH [None]
